FAERS Safety Report 6310919-2 (Version None)
Quarter: 2009Q3

REPORT INFORMATION
  Report Type: 
  Country: None (occurrence: None)
  Receive Date: 20090812
  Receipt Date: 20050822
  Transmission Date: 20100115
  Serious: Yes (Hospitalization)
  Sender: FDA-Public Use
  Company Number: FR-GUERBET-20050095

PATIENT
  Age: 82 Year
  Sex: Male

DRUGS (14)
  1. HEXABRIX [Suspect]
     Indication: ARTERIOGRAM CORONARY
     Dosage: DOSAGE: 600, ML MILLILITRE(S), 1, 1, TOTAL INTRA-ARTERIAL
     Route: 013
     Dates: start: 20050716, end: 20050716
  2. REOPRO: UNKNOWN / ABCIXIMAB [Concomitant]
  3. ATROPINE: UNKNOWN / ATROPINE [Concomitant]
  4. HYDROCORTISONE: UNKNOWN / HYDROCORTISONE [Concomitant]
  5. CORVASAL: UNKNOWN / MOLSIDOMINE [Concomitant]
  6. ISOPTINE: UNKNOWN / VERAPAMIL [Concomitant]
  7. SECTRAL: UNKNOWN / ACEBUTOLOL [Concomitant]
  8. RISORDAN: UNKNOWN / ISOSORBIDE [Concomitant]
  9. MUCOMYST [Concomitant]
  10. LOVENOX: UNKNOWN / ENOXAPARIN [Concomitant]
  11. ASPEGIC: UNKNOWN / LYSINE ACETYLSALICYLATE [Concomitant]
  12. PLAVIX: UNKNOWN / CLOPIDOGREL [Concomitant]
  13. MOPRAL: UNKNOWN / OMEPRAZOLE [Concomitant]
  14. TAHOR: UNKNOWN / ATORVASTATIN [Concomitant]

REACTIONS (3)
  - ACUTE PULMONARY OEDEMA [None]
  - CARDIAC ARREST [None]
  - RENAL FAILURE ACUTE [None]
